FAERS Safety Report 4572563-7 (Version None)
Quarter: 2005Q1

REPORT INFORMATION
  Report Type: 
  Country: None (occurrence: None)
  Receive Date: 20050208
  Receipt Date: 20050127
  Transmission Date: 20050727
  Serious: Yes (Hospitalization, Other)
  Sender: FDA-Public Use
  Company Number: US-JNJFOC-20050103548

PATIENT
  Sex: Female

DRUGS (27)
  1. INFLIXIMAB [Suspect]
     Indication: RHEUMATOID ARTHRITIS
     Route: 042
  2. AMILORIDE [Concomitant]
  3. AMILORIDE [Concomitant]
  4. CALCIUM GLUCONATE [Concomitant]
  5. CELEBREX [Concomitant]
  6. DARVOCET-N 100 [Concomitant]
  7. DARVOCET-N 100 [Concomitant]
  8. FOLIC ACID [Concomitant]
  9. FOSAMAX [Concomitant]
  10. MAGNESIUM [Concomitant]
     Dosage: DAILY
  11. METHOTREXATE [Concomitant]
  12. MULTI-VITAMIN [Concomitant]
  13. MULTI-VITAMIN [Concomitant]
  14. MULTI-VITAMIN [Concomitant]
  15. MULTI-VITAMIN [Concomitant]
  16. MULTI-VITAMIN [Concomitant]
  17. MULTI-VITAMIN [Concomitant]
  18. MULTI-VITAMIN [Concomitant]
  19. MULTI-VITAMIN [Concomitant]
     Dosage: DAILY
  20. NORVASC [Concomitant]
  21. POTASSIUM CHLORIDE [Concomitant]
     Dosage: DAILY
  22. PREDNISONE [Concomitant]
     Dosage: DAILY
  23. TUMS [Concomitant]
     Dosage: DAILY
  24. TYLENOL [Concomitant]
  25. AMITRIPTYLINE [Concomitant]
     Dosage: DAILY
  26. AMBIEN [Concomitant]
     Dosage: AT BEDTIME
  27. VITAMIN B-12 [Concomitant]
     Dosage: DAILY

REACTIONS (8)
  - AORTIC ANEURYSM [None]
  - BACK PAIN [None]
  - COMPRESSION FRACTURE [None]
  - HYPOKALAEMIA [None]
  - HYPONATRAEMIA [None]
  - PNEUMONIA [None]
  - TRANSIENT ISCHAEMIC ATTACK [None]
  - URINARY TRACT INFECTION [None]
